FAERS Safety Report 9106694 (Version 2)
Quarter: 2013Q1

REPORT INFORMATION
  Report Type: Report from Study
  Country: US (occurrence: US)
  Receive Date: 20130221
  Receipt Date: 20130319
  Transmission Date: 20140127
  Serious: Yes (Death, Hospitalization)
  Sender: FDA-Public Use
  Company Number: US-BAYER-2013-002268

PATIENT
  Age: 49 Year
  Sex: Male

DRUGS (2)
  1. NEXAVAR [Suspect]
     Indication: HEPATIC CIRRHOSIS
     Dosage: 400 MG, BID
     Route: 048
     Dates: start: 20121220, end: 20130124
  2. NEXAVAR [Suspect]
     Indication: HEPATIC CIRRHOSIS
     Dosage: 400 MG, BID
     Route: 048
     Dates: start: 20130101

REACTIONS (17)
  - Ammonia increased [None]
  - Nephrolithiasis [None]
  - Kidney infection [None]
  - Hepatic infection [None]
  - Cholecystitis infective [None]
  - Oedema peripheral [None]
  - Skin exfoliation [None]
  - Off label use [None]
  - Pain [Unknown]
  - Headache [Unknown]
  - Nausea [None]
  - Diarrhoea [None]
  - Muscular weakness [None]
  - Back pain [None]
  - Neck pain [None]
  - Chest pain [None]
  - Death [Fatal]
